FAERS Safety Report 9189152 (Version 1)
Quarter: 2013Q1

REPORT INFORMATION
  Report Type: Spontaneous
  Country: NO (occurrence: NO)
  Receive Date: 20130326
  Receipt Date: 20130326
  Transmission Date: 20140127
  Serious: Yes (Hospitalization)
  Sender: FDA-Public Use
  Company Number: NO-B.I. PHARMACEUTICALS,INC./RIDGEFIELD-2013-SW-00153NO

PATIENT
  Age: 70 Year
  Sex: Male

DRUGS (3)
  1. PRADAXA [Suspect]
     Indication: ATRIAL FIBRILLATION
     Dosage: 220 MG
     Route: 048
     Dates: start: 20121108
  2. APROVEL [Concomitant]
     Route: 048
  3. ISOPTIN RETARD [Concomitant]
     Route: 048

REACTIONS (1)
  - Myocardial infarction [Not Recovered/Not Resolved]
